FAERS Safety Report 8444803-5 (Version None)
Quarter: 2012Q2

REPORT INFORMATION
  Report Type: 
  Country: None (occurrence: None)
  Receive Date: 20120618
  Receipt Date: 20120605
  Transmission Date: 20120825
  Serious: Yes (Other)
  Sender: FDA-Public Use
  Company Number: JP-AMGEN-JPNSP2012034792

PATIENT
  Age: 51 Year
  Sex: Male

DRUGS (7)
  1. ROMIPLATE [Suspect]
     Route: 058
     Dates: start: 20120507, end: 20120514
  2. ROMIPLATE [Suspect]
     Route: 058
     Dates: start: 20120514, end: 20120514
  3. ROMIPLATE [Suspect]
     Route: 058
  4. ALL OTHER THERAPEUTIC PRODUCTS [Concomitant]
     Dosage: UNCERTAINTY
     Route: 065
  5. ROMIPLATE [Suspect]
     Indication: IDIOPATHIC THROMBOCYTOPENIC PURPURA
     Dosage: 1 MUG/KG, QWK
     Route: 058
     Dates: start: 20120507, end: 20120507
  6. ADONA (AC-17) [Concomitant]
     Dosage: UNCERTAINTY
     Route: 065
  7. ANABOLIC STEROIDS [Concomitant]
     Dosage: UNCERTAINTY
     Route: 065

REACTIONS (3)
  - WHITE BLOOD CELL COUNT DECREASED [None]
  - ERYTHROBLAST COUNT INCREASED [None]
  - MYELOFIBROSIS [None]
